FAERS Safety Report 20016827 (Version 1)
Quarter: 2021Q4

REPORT INFORMATION
  Report Type: Spontaneous
  Country: US (occurrence: None)
  Receive Date: 20211105
  Receipt Date: 20211105
  Transmission Date: 20220304
  Serious: Yes (Hospitalization)
  Sender: FDA-Public Use
  Company Number: None

PATIENT
  Age: 76 Year
  Sex: Female

DRUGS (2)
  1. SUNITINIB [Suspect]
     Active Substance: SUNITINIB
     Indication: Renal cancer
     Dosage: FREQUENCY : DAILY;?
     Route: 048
     Dates: start: 20211002
  2. SUNITINIB [Suspect]
     Active Substance: SUNITINIB

REACTIONS (3)
  - Dehydration [None]
  - Urinary tract infection [None]
  - Therapy interrupted [None]

NARRATIVE: CASE EVENT DATE: 20211016
